FAERS Safety Report 12528104 (Version 2)
Quarter: 2016Q3

REPORT INFORMATION
  Report Type: Spontaneous
  Country: ES (occurrence: ES)
  Receive Date: 20160705
  Receipt Date: 20160728
  Transmission Date: 20161109
  Serious: Yes (Other)
  Sender: FDA-Public Use
  Company Number: ES-PFIZER INC-2016313315

PATIENT
  Age: 61 Year
  Sex: Female
  Weight: 46 kg

DRUGS (2)
  1. GEMCITABINE HYDROCHLORIDE. [Suspect]
     Active Substance: GEMCITABINE HYDROCHLORIDE
     Indication: ADENOCARCINOMA PANCREAS
     Dosage: 1000 MG/M2, CYCLIC (DAYS 1, 8 AND 15)
     Route: 042
  2. GEMCITABINE HYDROCHLORIDE. [Suspect]
     Active Substance: GEMCITABINE HYDROCHLORIDE
     Dosage: 1000 MG/M2, CYCLIC  (DAYS 1, 8 AND 15) 3 CYCLES
     Route: 042

REACTIONS (7)
  - Pancreatic insufficiency [Unknown]
  - Asthenia [Unknown]
  - Cholangitis acute [Unknown]
  - Anaemia [Unknown]
  - Diabetes mellitus [Unknown]
  - Neutropenia [Unknown]
  - Enteritis [Unknown]
